FAERS Safety Report 6019652-8 (Version None)
Quarter: 2008Q4

REPORT INFORMATION
  Report Type: 
  Country: None (occurrence: None)
  Receive Date: 20081224
  Receipt Date: 20081219
  Transmission Date: 20090506
  Serious: Yes (Other)
  Sender: FDA-Public Use
  Company Number: DE-JNJFOC-20080200003

PATIENT
  Sex: Female
  Weight: 63 kg

DRUGS (3)
  1. TOPAMAX [Suspect]
     Indication: MIGRAINE
     Route: 065
  2. KYTTA SEDATIVUM [Concomitant]
     Indication: SLEEP DISORDER
  3. ERYTHROMYCIN [Concomitant]
     Indication: CHLAMYDIAL INFECTION

REACTIONS (5)
  - CHLAMYDIAL INFECTION [None]
  - DRUG EXPOSURE DURING PREGNANCY [None]
  - GESTATIONAL DIABETES [None]
  - PRE-ECLAMPSIA [None]
  - SLEEP DISORDER [None]
